FAERS Safety Report 17674226 (Version 1)
Quarter: 2020Q2

REPORT INFORMATION
  Report Type: Spontaneous
  Country: US (occurrence: US)
  Receive Date: 20200416
  Receipt Date: 20200416
  Transmission Date: 20200714
  Serious: No
  Sender: FDA-Public Use
  Company Number: US-ALKEM LABORATORIES LIMITED-US-ALKEM-2020-01024

PATIENT

DRUGS (5)
  1. BEMPEDOIC ACID. [Suspect]
     Active Substance: BEMPEDOIC ACID
     Indication: HYPERCHOLESTEROLAEMIA
     Dosage: 60 MILLIGRAM, QD
     Route: 065
  2. BEMPEDOIC ACID. [Suspect]
     Active Substance: BEMPEDOIC ACID
     Dosage: 120 MILLIGRAM, QD
     Route: 065
  3. BEMPEDOIC ACID. [Suspect]
     Active Substance: BEMPEDOIC ACID
     Dosage: 180 MILLIGRAM, QD
     Route: 065
  4. ATORVASTATIN CALCIUM. [Suspect]
     Active Substance: ATORVASTATIN CALCIUM
     Indication: PRODUCT USED FOR UNKNOWN INDICATION
     Dosage: 10 MILLIGRAM, QD
     Route: 065
  5. BEMPEDOIC ACID. [Suspect]
     Active Substance: BEMPEDOIC ACID
     Dosage: 240 MILLIGRAM, QD
     Route: 065

REACTIONS (1)
  - Hepatic enzyme increased [Recovered/Resolved]
